FAERS Safety Report 25579209 (Version 1)
Quarter: 2025Q3

REPORT INFORMATION
  Report Type: Spontaneous
  Country: US (occurrence: US)
  Receive Date: 20250718
  Receipt Date: 20250718
  Transmission Date: 20251021
  Serious: No
  Sender: NOVO NORDISK
  Company Number: US-NOVOPROD-1240704

PATIENT
  Age: 68 Year
  Sex: Female

DRUGS (1)
  1. WEGOVY [Suspect]
     Active Substance: SEMAGLUTIDE
     Indication: Obesity
     Route: 058
     Dates: start: 20240425, end: 20240501

REACTIONS (7)
  - Photopsia [Recovered/Resolved]
  - Decreased appetite [Recovered/Resolved]
  - Hypotension [Recovered/Resolved]
  - Asthenia [Recovered/Resolved]
  - Dizziness [Recovered/Resolved]
  - Vomiting [Recovered/Resolved]
  - Nausea [Recovered/Resolved]

NARRATIVE: CASE EVENT DATE: 20240425
